FAERS Safety Report 6876524-4 (Version None)
Quarter: 2010Q3

REPORT INFORMATION
  Report Type: 
  Country: None (occurrence: None)
  Receive Date: 20100727
  Receipt Date: 20100709
  Transmission Date: 20110219
  Serious: No
  Sender: FDA-Public Use
  Company Number: US-BAYER-201027624NA

PATIENT
  Sex: Female

DRUGS (1)
  1. ULTRAVIST 300 [Suspect]
     Indication: SCAN
     Dosage: AS USED: 100 ML
     Dates: start: 20100709, end: 20100709

REACTIONS (2)
  - NASAL CONGESTION [None]
  - RETCHING [None]
